FAERS Safety Report 19778582 (Version 1)
Quarter: 2021Q3

REPORT INFORMATION
  Report Type: Spontaneous
  Country: FR (occurrence: FR)
  Receive Date: 20210902
  Receipt Date: 20210902
  Transmission Date: 20211014
  Serious: Yes (Hospitalization)
  Sender: FDA-Public Use
  Company Number: FR-AUROBINDO-AUR-APL-2021-037288

PATIENT
  Age: 32 Year
  Sex: Female

DRUGS (2)
  1. TERALITHE [Interacting]
     Active Substance: LITHIUM CARBONATE
     Indication: SCHIZOPHRENIA
     Dosage: 600 MILLIGRAM, ONCE A DAY
     Route: 065
     Dates: start: 20201015, end: 20210312
  2. SPIRONOLACTONE. [Suspect]
     Active Substance: SPIRONOLACTONE
     Indication: POLYCYSTIC OVARIES
     Dosage: 150 MILLIGRAM, ONCE A DAY
     Route: 048
     Dates: start: 20201028, end: 20210312

REACTIONS (2)
  - Antipsychotic drug level above therapeutic [Recovered/Resolved]
  - Confusional state [Recovered/Resolved]

NARRATIVE: CASE EVENT DATE: 20210309
